FAERS Safety Report 13767104 (Version 2)
Quarter: 2017Q3

REPORT INFORMATION
  Report Type: Report from Study
  Country: None (occurrence: US)
  Receive Date: 20170719
  Receipt Date: 20170807
  Transmission Date: 20171127
  Serious: Yes (Hospitalization, Other)
  Sender: FDA-Public Use
  Company Number: US-ABBVIE-17K-163-2042148-00

PATIENT
  Age: 61 Year
  Sex: Female

DRUGS (1)
  1. HUMIRA [Suspect]
     Active Substance: ADALIMUMAB
     Indication: CROHN^S DISEASE
     Route: 058
     Dates: start: 20170518

REACTIONS (8)
  - Loss of consciousness [Recovered/Resolved]
  - Fall [Unknown]
  - Drug abuse [Recovered/Resolved]
  - Contusion [Not Recovered/Not Resolved]
  - Laceration [Recovering/Resolving]
  - Road traffic accident [Unknown]
  - Delirium [Recovered/Resolved]
  - Contusion [Recovering/Resolving]

NARRATIVE: CASE EVENT DATE: 20170522
